FAERS Safety Report 7339553-2 (Version None)
Quarter: 2011Q1

REPORT INFORMATION
  Report Type: 
  Country: None (occurrence: None)
  Receive Date: 20110308
  Receipt Date: 20110223
  Transmission Date: 20110831
  Serious: Yes (Other)
  Sender: FDA-Public Use
  Company Number: US-AMGEN-USASP2011010588

PATIENT
  Age: 63 Year
  Sex: Male

DRUGS (6)
  1. PROSCAR [Concomitant]
  2. PROLIA [Suspect]
     Indication: OSTEOPOROSIS
     Dosage: 60 MG, Q6MO
     Dates: start: 20101101
  3. ASPIRIN [Concomitant]
  4. FLOMAX [Concomitant]
  5. PERCOCET [Concomitant]
  6. ASPIRIN [Concomitant]
     Dosage: UNK

REACTIONS (1)
  - BONE PAIN [None]
